FAERS Safety Report 17114421 (Version 1)
Quarter: 2019Q4

REPORT INFORMATION
  Report Type: Spontaneous
  Country: US (occurrence: US)
  Receive Date: 20191205
  Receipt Date: 20191205
  Transmission Date: 20200122
  Serious: Yes (Death, Other)
  Sender: FDA-Public Use
  Company Number: US-CPL-001432

PATIENT
  Age: 65 Year
  Sex: Female

DRUGS (1)
  1. METRONIDAZOLE. [Suspect]
     Active Substance: METRONIDAZOLE
     Indication: CHOLECYSTITIS
     Dosage: CONTINUED ON IV AT HER PREVIOUS DOSAGE OF 1.5 G PER DAY
     Route: 048

REACTIONS (2)
  - Condition aggravated [Fatal]
  - Encephalopathy [Fatal]
